FAERS Safety Report 23746265 (Version 1)
Quarter: 2024Q2

REPORT INFORMATION
  Report Type: Spontaneous
  Country: CN (occurrence: CN)
  Receive Date: 20240416
  Receipt Date: 20240416
  Transmission Date: 20240716
  Serious: Yes (Hospitalization, Other)
  Sender: FDA-Public Use
  Company Number: CN-SUN PHARMACEUTICAL INDUSTRIES LTD-2024R1-441855

PATIENT
  Age: 24 Year
  Sex: Female
  Weight: 49.5 kg

DRUGS (11)
  1. DEXMEDETOMIDINE [Suspect]
     Active Substance: DEXMEDETOMIDINE
     Indication: Anaesthesia procedure
     Dosage: UNK (0.25 ?G/KG/H)
     Route: 065
  2. MIDAZOLAM [Suspect]
     Active Substance: MIDAZOLAM
     Indication: Anaesthesia procedure
     Dosage: UNK (2 MG)
     Route: 065
  3. PROPOFOL [Suspect]
     Active Substance: PROPOFOL
     Indication: Anaesthesia procedure
     Dosage: UNK (120 MG)
     Route: 065
  4. REMIFENTANIL [Suspect]
     Active Substance: REMIFENTANIL
     Indication: Anaesthesia procedure
     Dosage: UNK (0.05 ?G/KG/MIN)
     Route: 065
  5. SEVOFLURANE [Suspect]
     Active Substance: SEVOFLURANE
     Indication: Anaesthesia procedure
     Dosage: UNK  (2%, CONTINUOUSLY)
  6. ATROPINE [Suspect]
     Active Substance: ATROPINE\ATROPINE SULFATE
     Indication: Anaesthesia procedure
     Dosage: UNK (0.5 MG)
     Route: 065
  7. FLUMAZENIL [Suspect]
     Active Substance: FLUMAZENIL
     Indication: Anaesthesia procedure
     Dosage: UNK (0.5 MG)
     Route: 065
  8. NEOSTIGMINE [Suspect]
     Active Substance: NEOSTIGMINE
     Indication: Anaesthesia procedure
     Dosage: UNK (1 MG)
     Route: 065
  9. SUFENTANIL [Suspect]
     Active Substance: SUFENTANIL
     Indication: Anaesthesia procedure
     Dosage: UNK (15 UG)
     Route: 065
  10. SUFENTANIL [Suspect]
     Active Substance: SUFENTANIL
     Dosage: UNK (5 UG)
     Route: 065
  11. VECURONIUM BROMIDE [Suspect]
     Active Substance: VECURONIUM BROMIDE
     Indication: Anaesthesia procedure
     Dosage: UNK (5 MG)
     Route: 065

REACTIONS (2)
  - Negative pressure pulmonary oedema [Recovering/Resolving]
  - Pulmonary oedema [Recovering/Resolving]
